FAERS Safety Report 24728054 (Version 1)
Quarter: 2024Q4

REPORT INFORMATION
  Report Type: Spontaneous
  Country: US (occurrence: US)
  Receive Date: 20241212
  Receipt Date: 20241212
  Transmission Date: 20250115
  Serious: Yes (Other)
  Sender: MYLAN
  Company Number: US-MYLANLABS-2024M1109766

PATIENT
  Age: 10 Year
  Sex: Female

DRUGS (3)
  1. HYDROCORTISONE [Suspect]
     Active Substance: HYDROCORTISONE
     Indication: Dermatitis atopic
     Dosage: UNK
     Route: 061
  2. CIMETIDINE [Suspect]
     Active Substance: CIMETIDINE
     Indication: Skin papilloma
     Dosage: 30 MILLIGRAM/KILOGRAM, QD
     Route: 065
  3. MOMETASONE [Suspect]
     Active Substance: MOMETASONE
     Indication: Dermatitis atopic
     Dosage: UNK
     Route: 061

REACTIONS (3)
  - Drug ineffective [Unknown]
  - Treatment noncompliance [Unknown]
  - Off label use [Unknown]
